FAERS Safety Report 8585490-5 (Version None)
Quarter: 2012Q3

REPORT INFORMATION
  Report Type: 
  Country: None (occurrence: None)
  Receive Date: 20120810
  Receipt Date: 20120523
  Transmission Date: 20120928
  Serious: No
  Sender: FDA-Public Use
  Company Number: US-GLAXOSMITHKLINE-A0978754A

PATIENT
  Age: 55 Year
  Sex: Male

DRUGS (3)
  1. LOPRESSOR [Concomitant]
  2. REQUIP XL [Suspect]
     Indication: RESTLESS LEGS SYNDROME
     Dosage: 2MG AT NIGHT
     Route: 048
     Dates: start: 20100101
  3. SEROQUEL [Concomitant]

REACTIONS (3)
  - FRUSTRATION [None]
  - ANGER [None]
  - AGITATION [None]
